FAERS Safety Report 21510407 (Version 1)
Quarter: 2022Q4

REPORT INFORMATION
  Report Type: Report from Study
  Country: US (occurrence: US)
  Receive Date: 20221026
  Receipt Date: 20221026
  Transmission Date: 20230113
  Serious: Yes (Other)
  Sender: FDA-Public Use
  Company Number: US-JAZZ-2022-US-025644

PATIENT
  Sex: Male

DRUGS (21)
  1. XYREM [Suspect]
     Active Substance: SODIUM OXYBATE
     Indication: Somnolence
     Dosage: UNK
     Route: 048
  2. MYER^S COC [Concomitant]
     Indication: Product used for unknown indication
     Dosage: UNK
     Dates: start: 20191219
  3. MINOCYCLINE [Concomitant]
     Active Substance: MINOCYCLINE HYDROCHLORIDE
     Indication: Product used for unknown indication
     Dosage: UNK
     Dates: start: 20170609
  4. ALINIA [Concomitant]
     Active Substance: NITAZOXANIDE
     Indication: Product used for unknown indication
     Dosage: UNK
     Dates: start: 20191015
  5. LOPERAMIDE HYDROCHLORIDE [Concomitant]
     Active Substance: LOPERAMIDE HYDROCHLORIDE
     Indication: Product used for unknown indication
     Dosage: UNK
     Dates: start: 20191015
  6. NALTREXONE [Concomitant]
     Active Substance: NALTREXONE
     Indication: Product used for unknown indication
     Dosage: UNK
     Dates: start: 20170727
  7. KEPPRA XR [Concomitant]
     Active Substance: LEVETIRACETAM
     Indication: Product used for unknown indication
     Dosage: UNK
     Dates: start: 20190525
  8. KLONOPIN [Concomitant]
     Active Substance: CLONAZEPAM
     Indication: Product used for unknown indication
     Dosage: UNK
     Dates: start: 20190525
  9. ATIVAN [Concomitant]
     Active Substance: LORAZEPAM
     Indication: Product used for unknown indication
     Dosage: UNK
     Dates: start: 20190525
  10. ARMOUR THYROID [Concomitant]
     Active Substance: THYROID, PORCINE
     Indication: Product used for unknown indication
     Dosage: UNK
     Dates: start: 20190207
  11. DIAMOX SEQUELS [Concomitant]
     Active Substance: ACETAZOLAMIDE
     Indication: Product used for unknown indication
     Dosage: UNK
     Dates: start: 20160107
  12. HUMAN HEMATOPOIETIC PROGENITOR CELLS [Concomitant]
     Active Substance: HUMAN HEMATOPOIETIC PROGENITOR CELLS
     Indication: Product used for unknown indication
     Dosage: THERAPY
     Dates: start: 20170608
  13. CURCUMIN [Concomitant]
     Active Substance: CURCUMIN
     Indication: Product used for unknown indication
     Dosage: UNK
     Dates: start: 20171216
  14. PROBIOTICS NOS [Concomitant]
     Active Substance: PROBIOTICS NOS
     Indication: Product used for unknown indication
     Dosage: 450 BILLION PACKET
     Dates: start: 20191012
  15. ZINC PICOLINATE [Concomitant]
     Active Substance: ZINC PICOLINATE
     Indication: Product used for unknown indication
     Dosage: UNK
     Dates: start: 20140519
  16. DIETARY SUPPLEMENT [Concomitant]
     Active Substance: DIETARY SUPPLEMENT
     Indication: Product used for unknown indication
     Dosage: UNK
     Dates: start: 20140521
  17. UBIQUINOL [Concomitant]
     Active Substance: UBIQUINOL
     Indication: Product used for unknown indication
     Dosage: SOFTGEL
     Dates: start: 20140521
  18. IODINE [Concomitant]
     Active Substance: IODINE
     Indication: Product used for unknown indication
     Dosage: UNK
     Dates: start: 20151026
  19. ACNE [SALICYLIC ACID] [Concomitant]
     Indication: Product used for unknown indication
     Dosage: UNK
     Dates: start: 20160602
  20. METHYL FOLATE [CALCIUM LEVOMEFOLATE] [Concomitant]
     Indication: Product used for unknown indication
     Dosage: UNK
     Dates: start: 20180407
  21. FLORASTOR [LACTOBACILLUS ACIDOPHILUS] [Concomitant]
     Indication: Product used for unknown indication
     Dosage: UNK
     Dates: start: 20191002

REACTIONS (1)
  - Autism spectrum disorder [Unknown]
